FAERS Safety Report 8149315-4 (Version None)
Quarter: 2012Q1

REPORT INFORMATION
  Report Type: 
  Country: None (occurrence: None)
  Receive Date: 20120218
  Receipt Date: 20110923
  Transmission Date: 20120608
  Serious: No
  Sender: FDA-Public Use
  Company Number: US-ALLERGAN-1112727US

PATIENT
  Sex: Female

DRUGS (1)
  1. BOTULINUM TOXIN TYPE A [Suspect]
     Indication: MIGRAINE
     Dosage: 23 UNITS, SINGLE
     Route: 030
     Dates: start: 20110819, end: 20110819

REACTIONS (5)
  - CONFUSIONAL STATE [None]
  - PAIN [None]
  - INSOMNIA [None]
  - HEADACHE [None]
  - VISION BLURRED [None]
